FAERS Safety Report 8598265-8 (Version None)
Quarter: 2012Q3

REPORT INFORMATION
  Report Type: 
  Country: None (occurrence: None)
  Receive Date: 20120806
  Receipt Date: 20120806
  Transmission Date: 20120928
  Serious: Yes (Life-Threatening)
  Sender: FDA-Public Use
  Company Number: None

PATIENT
  Age: 50 Year
  Sex: Male
  Weight: 103.6 kg

DRUGS (1)
  1. HURRICANE TOPICAL SPRAY 20% BEUTLICH [Suspect]
     Indication: ANAESTHESIA
     Dosage: INEXACT ONCE OROPHARINGEAL
     Route: 049
     Dates: start: 20120724, end: 20120724

REACTIONS (4)
  - METHAEMOGLOBINAEMIA [None]
  - HYPOXIA [None]
  - MENTAL STATUS CHANGES [None]
  - CYANOSIS [None]
